FAERS Safety Report 15647956 (Version 2)
Quarter: 2018Q4

REPORT INFORMATION
  Report Type: Report from Study
  Country: US (occurrence: US)
  Receive Date: 20181122
  Receipt Date: 20181129
  Transmission Date: 20190205
  Serious: Yes (Death, Hospitalization, Other)
  Sender: FDA-Public Use
  Company Number: US-BRISTOL-MYERS SQUIBB COMPANY-BMS-2018-106117

PATIENT
  Age: 72 Year
  Sex: Female
  Weight: 83.6 kg

DRUGS (2)
  1. NIVOLUMAB [Suspect]
     Active Substance: NIVOLUMAB
     Indication: RENAL CELL CARCINOMA
     Dosage: 360 MG, Q3WK
     Route: 065
     Dates: start: 20180612, end: 20181112
  2. ALLOPURINOL. [Concomitant]
     Active Substance: ALLOPURINOL
     Indication: GOUT
     Dosage: 50 MG, QD
     Route: 065

REACTIONS (3)
  - Necrotising fasciitis [Unknown]
  - Pneumomediastinum [Unknown]
  - Myocarditis [Fatal]

NARRATIVE: CASE EVENT DATE: 20181107
